FAERS Safety Report 5801651-X (Version None)
Quarter: 2008Q3

REPORT INFORMATION
  Report Type: 
  Country: None (occurrence: None)
  Receive Date: 20080707
  Receipt Date: 20080624
  Transmission Date: 20090109
  Serious: Yes (Other)
  Sender: FDA-Public Use
  Company Number: B0361308A

PATIENT
  Age: 42 Year
  Sex: Female

DRUGS (8)
  1. PAROXETINE HCL [Suspect]
     Indication: DEPRESSION
     Dates: start: 19971010
  2. LIBRIUM [Concomitant]
     Dates: start: 19770307
  3. DIAZEPAM [Concomitant]
     Dates: start: 19820325
  4. AMITRIPTYLINE HCL [Concomitant]
     Dates: start: 19980423
  5. BUSPAR [Concomitant]
     Dates: start: 20010418
  6. PROPRANOLOL [Concomitant]
  7. HRT [Concomitant]
  8. BETA BLOCKER [Concomitant]

REACTIONS (11)
  - AGORAPHOBIA [None]
  - ANXIETY [None]
  - DELUSION [None]
  - DRUG WITHDRAWAL SYNDROME [None]
  - EMOTIONAL DISORDER [None]
  - INAPPROPRIATE AFFECT [None]
  - MOOD SWINGS [None]
  - NAUSEA [None]
  - PANIC ATTACK [None]
  - SUICIDAL IDEATION [None]
  - WEIGHT INCREASED [None]
